FAERS Safety Report 7424231-1 (Version None)
Quarter: 2011Q2

REPORT INFORMATION
  Report Type: 
  Country: None (occurrence: None)
  Receive Date: 20110419
  Receipt Date: 20110307
  Transmission Date: 20111010
  Serious: Yes (Hospitalization, Other)
  Sender: FDA-Public Use
  Company Number: US-BAYER-2011-003323

PATIENT
  Age: 50 Year
  Sex: Female
  Weight: 89.796 kg

DRUGS (3)
  1. NSAID'S [Concomitant]
     Indication: DYSMENORRHOEA
     Dosage: UNK UNK, PRN
     Route: 048
     Dates: start: 19980101
  2. YAZ [Suspect]
     Indication: PRODUCT USED FOR UNKNOWN INDICATION
     Dosage: UNK UNK, QD
     Dates: start: 20080201, end: 20081001
  3. YASMIN [Suspect]
     Indication: PRODUCT USED FOR UNKNOWN INDICATION
     Dosage: UNK UNK, QD
     Dates: start: 20080201, end: 20081001

REACTIONS (8)
  - DEFORMITY [None]
  - DEEP VEIN THROMBOSIS [None]
  - PAIN IN EXTREMITY [None]
  - ASTHENIA [None]
  - PULMONARY EMBOLISM [None]
  - DISABILITY [None]
  - PAIN [None]
  - PULMONARY THROMBOSIS [None]
